FAERS Safety Report 19864761 (Version 1)
Quarter: 2021Q3

REPORT INFORMATION
  Report Type: Spontaneous
  Country: US (occurrence: US)
  Receive Date: 20210921
  Receipt Date: 20210921
  Transmission Date: 20211014
  Serious: Yes (Other)
  Sender: FDA-Public Use
  Company Number: US-PFIZER INC-202101192742

PATIENT
  Age: 22 Year
  Sex: Female
  Weight: 56.69 kg

DRUGS (3)
  1. XANAX [Suspect]
     Active Substance: ALPRAZOLAM
     Dosage: UNK
  2. TOZINAMERAN. [Suspect]
     Active Substance: TOZINAMERAN
     Indication: COVID-19 IMMUNISATION
     Dosage: DOSE 1, SINGLE
  3. TOZINAMERAN. [Suspect]
     Active Substance: TOZINAMERAN
     Dosage: DOSE 2, SINGLE

REACTIONS (7)
  - Limb discomfort [Unknown]
  - Pain in extremity [Unknown]
  - Pain [Unknown]
  - Arthralgia [Unknown]
  - Suicidal ideation [Unknown]
  - Condition aggravated [Unknown]
  - Poor quality sleep [Unknown]
